FAERS Safety Report 22259746 (Version 5)
Quarter: 2024Q2

REPORT INFORMATION
  Report Type: Report from Study
  Country: GT (occurrence: GT)
  Receive Date: 20230427
  Receipt Date: 20240426
  Transmission Date: 20240716
  Serious: Yes (Other)
  Sender: FDA-Public Use
  Company Number: GT-002147023-NVSC2022GT023080

PATIENT
  Sex: Female

DRUGS (8)
  1. SECUKINUMAB [Suspect]
     Active Substance: SECUKINUMAB
     Indication: Ankylosing spondylitis
     Dosage: 150 MG, QMO
     Route: 058
     Dates: start: 2020
  2. SECUKINUMAB [Suspect]
     Active Substance: SECUKINUMAB
     Dosage: 150 MG, QMO
     Route: 058
     Dates: start: 20210928
  3. SECUKINUMAB [Suspect]
     Active Substance: SECUKINUMAB
     Dosage: 150 MG, QMO
     Route: 058
     Dates: start: 20220922
  4. SECUKINUMAB [Suspect]
     Active Substance: SECUKINUMAB
     Dosage: 150 MG, QMO
     Route: 058
     Dates: start: 202210
  5. PLAQUINOL [Suspect]
     Active Substance: HYDROXYCHLOROQUINE SULFATE
     Indication: Rheumatoid arthritis
     Dosage: 0.5 DOSAGE FORM, QD
     Route: 048
  6. ESOMEPRAZOLE [Concomitant]
     Active Substance: ESOMEPRAZOLE
     Indication: Gastrointestinal disorder
     Dosage: UNK
     Route: 065
  7. SUCROL [Concomitant]
     Indication: Disturbance in attention
     Dosage: 1 DOSAGE FORM, Q12H (3 MONTHS AGO)
     Route: 048
  8. SUCROL [Concomitant]
     Indication: Memory impairment

REACTIONS (30)
  - Diabetes mellitus [Unknown]
  - Headache [Unknown]
  - Appetite disorder [Unknown]
  - Bone pain [Unknown]
  - Dry mouth [Unknown]
  - Thirst [Unknown]
  - Depressed mood [Unknown]
  - Weight decreased [Unknown]
  - Chronic myeloid leukaemia [Not Recovered/Not Resolved]
  - Pyrexia [Unknown]
  - Anaemia [Unknown]
  - Blood cholesterol increased [Unknown]
  - Animal bite [Unknown]
  - Blood triglycerides increased [Unknown]
  - Pulmonary pain [Recovered/Resolved]
  - Arthralgia [Recovering/Resolving]
  - Inflammation [Recovering/Resolving]
  - Insomnia [Unknown]
  - Pruritus [Unknown]
  - Dizziness [Unknown]
  - Pain [Recovering/Resolving]
  - Urine odour abnormal [Unknown]
  - Back pain [Unknown]
  - Fear [Unknown]
  - Foot fracture [Unknown]
  - Abdominal pain upper [Unknown]
  - Blood disorder [Not Recovered/Not Resolved]
  - Ill-defined disorder [Unknown]
  - Influenza [Unknown]
  - Product availability issue [Unknown]

NARRATIVE: CASE EVENT DATE: 20220101
